FAERS Safety Report 12531340 (Version 1)
Quarter: 2016Q3

REPORT INFORMATION
  Report Type: Report from Study
  Country: PK (occurrence: PK)
  Receive Date: 20160706
  Receipt Date: 20160706
  Transmission Date: 20161109
  Serious: Yes (Other)
  Sender: FDA-Public Use
  Company Number: PHHY2016PK092117

PATIENT
  Age: 73 Year
  Sex: Male
  Weight: 62 kg

DRUGS (1)
  1. TASIGNA [Suspect]
     Active Substance: NILOTINIB
     Indication: CHRONIC MYELOID LEUKAEMIA
     Dosage: 600 MG, BID
     Route: 048
     Dates: start: 20160516, end: 20160523

REACTIONS (1)
  - Electrocardiogram abnormal [Recovering/Resolving]

NARRATIVE: CASE EVENT DATE: 20160522
